FAERS Safety Report 4444032-6 (Version None)
Quarter: 2004Q3

REPORT INFORMATION
  Report Type: 
  Country: None (occurrence: None)
  Receive Date: 20040729
  Receipt Date: 20001023
  Transmission Date: 20050211
  Serious: No
  Sender: FDA-Public Use
  Company Number: KII-2000-0001893

PATIENT
  Sex: Female

DRUGS (1)
  1. MORPHINE SULFATE [Suspect]
     Indication: CANCER PAIN
     Dosage: 8 MG, Q1H

REACTIONS (1)
  - RESPIRATORY ARREST [None]
